FAERS Safety Report 5614274-2 (Version None)
Quarter: 2008Q1

REPORT INFORMATION
  Report Type: 
  Country: None (occurrence: None)
  Receive Date: 20080130
  Receipt Date: 20080116
  Transmission Date: 20080703
  Serious: Yes (Other)
  Sender: FDA-Public Use
  Company Number: CHNY2008GB00618

PATIENT

DRUGS (2)
  1. ACETYLSALICYLIC ACID SRT [Suspect]
  2. DIPYRIDAMOLE [Suspect]

REACTIONS (2)
  - HAEMATURIA [None]
  - ISCHAEMIC STROKE [None]
